FAERS Safety Report 18420073 (Version 1)
Quarter: 2020Q4

REPORT INFORMATION
  Report Type: Spontaneous
  Country: US (occurrence: US)
  Receive Date: 20201023
  Receipt Date: 20201023
  Transmission Date: 20210114
  Serious: Yes (Hospitalization, Other)
  Sender: FDA-Public Use
  Company Number: US-AAVISPHARMA-2020AP000004

PATIENT

DRUGS (3)
  1. KETOCONAZOLE TABLETS [Suspect]
     Active Substance: KETOCONAZOLE
     Indication: HYPERADRENOCORTICISM
     Dosage: 800 MG/DAY
     Route: 065
  2. TEMOZOLOMIDE. [Concomitant]
     Active Substance: TEMOZOLOMIDE
     Route: 065
  3. NIVOLUMAB [Suspect]
     Active Substance: NIVOLUMAB
     Indication: PITUITARY CANCER METASTATIC
     Route: 065

REACTIONS (2)
  - Liver injury [Recovered/Resolved]
  - Drug interaction [Recovered/Resolved]
